FAERS Safety Report 8952499 (Version 5)
Quarter: 2016Q2

REPORT INFORMATION
  Report Type: Report from Study
  Country: BR (occurrence: BR)
  Receive Date: 20121205
  Receipt Date: 20160519
  Transmission Date: 20160815
  Serious: Yes (Other)
  Sender: FDA-Public Use
  Company Number: PHHY2012BR110789

PATIENT
  Sex: Female
  Weight: 56 kg

DRUGS (5)
  1. NARAMIG [Concomitant]
     Active Substance: NARATRIPTAN HYDROCHLORIDE
     Indication: PRODUCT USED FOR UNKNOWN INDICATION
     Route: 065
  2. TORSILAX [Concomitant]
     Active Substance: ACETAMINOPHEN\CAFFEINE\CARISOPRODOL\DICLOFENAC
     Indication: HEADACHE
     Route: 065
  3. SANDOMIGRAN [Concomitant]
     Active Substance: PIZOTYLINE
     Indication: HEADACHE
     Dosage: UNK
     Route: 065
  4. DICLIN [Concomitant]
     Indication: OVARIAN CYST
     Route: 065
  5. GILENYA [Suspect]
     Active Substance: FINGOLIMOD HYDROCHLORIDE
     Indication: MULTIPLE SCLEROSIS
     Dosage: 0.5 MG, QD
     Route: 048
     Dates: start: 201203

REACTIONS (10)
  - Headache [Not Recovered/Not Resolved]
  - Drug ineffective [Unknown]
  - Rash macular [Not Recovered/Not Resolved]
  - Limb discomfort [Recovering/Resolving]
  - Nausea [Not Recovered/Not Resolved]
  - Depressed mood [Unknown]
  - Nervousness [Recovering/Resolving]
  - Central nervous system lesion [Unknown]
  - Condition aggravated [Not Recovered/Not Resolved]
  - Stress [Unknown]
